FAERS Safety Report 7519212-3 (Version None)
Quarter: 2011Q2

REPORT INFORMATION
  Report Type: 
  Country: None (occurrence: None)
  Receive Date: 20110602
  Receipt Date: 20110225
  Transmission Date: 20111010
  Serious: No
  Sender: FDA-Public Use
  Company Number: US-BRISTOL-MYERS SQUIBB COMPANY-15570799

PATIENT
  Age: 5 Decade
  Sex: Female

DRUGS (4)
  1. GLIPIZIDE [Suspect]
  2. ACTOS [Concomitant]
     Dosage: STOP
  3. KOMBIGLYZE XR [Suspect]
     Dosage: KOMBIGLYZE XR.START WEEK AGO .
     Dates: start: 20110201, end: 20110201
  4. METFORMIN HCL [Concomitant]
     Dosage: STOP

REACTIONS (1)
  - PAIN [None]
